FAERS Safety Report 16505428 (Version 1)
Quarter: 2019Q3

REPORT INFORMATION
  Report Type: Spontaneous
  Country: FR (occurrence: FR)
  Receive Date: 20190701
  Receipt Date: 20190701
  Transmission Date: 20191004
  Serious: Yes (Hospitalization)
  Sender: FDA-Public Use
  Company Number: FR-MYLANLABS-2019M1060009

PATIENT
  Age: 86 Year
  Sex: Male
  Weight: 70.75 kg

DRUGS (10)
  1. LEVOFLOXACIN. [Suspect]
     Active Substance: LEVOFLOXACIN
     Indication: OSTEOMYELITIS
     Dosage: 250 MILLIGRAM, QD
     Route: 048
     Dates: start: 20181116, end: 20181201
  2. ZOFENOPRIL [Concomitant]
     Active Substance: ZOFENOPRIL
     Indication: HYPERTENSION
     Dosage: 30 MILLIGRAM, QD
     Route: 048
     Dates: end: 20181202
  3. KARDEGIC [Concomitant]
     Active Substance: ASPIRIN DL-LYSINE
     Indication: PRODUCT USED FOR UNKNOWN INDICATION
     Dosage: 75 MILLIGRAM, QD
     Route: 048
     Dates: end: 20181202
  4. XATRAL                             /00975302/ [Concomitant]
     Active Substance: ALFUZOSIN HYDROCHLORIDE
     Indication: PRODUCT USED FOR UNKNOWN INDICATION
     Dosage: 10 MILLIGRAM, QD
     Route: 048
  5. METFORMINE                         /00082701/ [Concomitant]
     Active Substance: METFORMIN HYDROCHLORIDE
     Indication: TYPE 2 DIABETES MELLITUS
     Dosage: 2000 MILLIGRAM, QD
     Route: 048
     Dates: end: 20181202
  6. FUROSEMIDE. [Concomitant]
     Active Substance: FUROSEMIDE
     Indication: HYPERTENSION
     Dosage: 20 MILLIGRAM, QD
     Route: 048
  7. OMEPRAZOLE. [Concomitant]
     Active Substance: OMEPRAZOLE
     Indication: GASTROOESOPHAGEAL REFLUX DISEASE
     Dosage: 20 MILLIGRAM, QD
     Route: 048
     Dates: end: 20181202
  8. NAFTIDROFURYL [Suspect]
     Active Substance: NAFRONYL
     Indication: PERIPHERAL ARTERIAL OCCLUSIVE DISEASE
     Dosage: UNK
     Route: 048
     Dates: end: 20181202
  9. ROSUVASTATINE                      /01588601/ [Concomitant]
     Active Substance: ROSUVASTATIN
     Indication: DYSLIPIDAEMIA
     Dosage: 5 MILLIGRAM, QD
     Route: 048
     Dates: end: 20181202
  10. RIFAMPICINE [Suspect]
     Active Substance: RIFAMPIN
     Indication: OSTEOMYELITIS
     Dosage: 900 MILLIGRAM, QD
     Route: 048
     Dates: start: 20181116, end: 20181201

REACTIONS (3)
  - Crystal nephropathy [Not Recovered/Not Resolved]
  - Tubulointerstitial nephritis [Not Recovered/Not Resolved]
  - Renal failure [Not Recovered/Not Resolved]

NARRATIVE: CASE EVENT DATE: 20181202
